FAERS Safety Report 8583211-3 (Version None)
Quarter: 2012Q3

REPORT INFORMATION
  Report Type: 
  Country: None (occurrence: None)
  Receive Date: 20120809
  Receipt Date: 20120801
  Transmission Date: 20120928
  Serious: Yes (Death)
  Sender: FDA-Public Use
  Company Number: US-ACTELION-A-US2012-68727

PATIENT
  Age: 59 Year
  Sex: Male

DRUGS (4)
  1. TRACLEER [Suspect]
     Indication: PULMONARY ARTERIAL HYPERTENSION
     Dosage: UNK
     Route: 048
     Dates: end: 20120718
  2. SILDENAFIL [Concomitant]
  3. ASPIRIN [Concomitant]
  4. TYVASO [Concomitant]

REACTIONS (3)
  - HEART RATE INCREASED [None]
  - DIZZINESS [None]
  - PULMONARY ARTERIAL HYPERTENSION [None]
